FAERS Safety Report 4919484-5 (Version None)
Quarter: 2006Q1

REPORT INFORMATION
  Report Type: 
  Country: None (occurrence: None)
  Receive Date: 20060222
  Receipt Date: 20051201
  Transmission Date: 20060701
  Serious: Yes (Disabling, Other)
  Sender: FDA-Public Use
  Company Number: US-MERCK-0512USA00229

PATIENT
  Age: 94 Year
  Sex: Female

DRUGS (1)
  1. COSOPT [Suspect]
     Route: 047

REACTIONS (7)
  - CORNEAL ABRASION [None]
  - CORNEAL DYSTROPHY [None]
  - CORNEAL OEDEMA [None]
  - DRY EYE [None]
  - EYE PAIN [None]
  - EYE PRURITUS [None]
  - FOREIGN BODY SENSATION IN EYES [None]
